FAERS Safety Report 7699826-0 (Version None)
Quarter: 2011Q3

REPORT INFORMATION
  Report Type: 
  Country: None (occurrence: None)
  Receive Date: 20110822
  Receipt Date: 20110811
  Transmission Date: 20111222
  Serious: No
  Sender: FDA-Public Use
  Company Number: US-BIOGENIDEC-2011BI030518

PATIENT
  Age: 31 Year
  Sex: Female

DRUGS (5)
  1. AVONEX [Suspect]
     Indication: MULTIPLE SCLEROSIS
     Route: 030
     Dates: start: 20110528
  2. AVONEX [Suspect]
     Route: 030
     Dates: start: 20031103, end: 20051105
  3. AVONEX [Suspect]
     Route: 030
     Dates: start: 20060228, end: 20070607
  4. AVONEX [Suspect]
     Route: 030
     Dates: start: 20070630, end: 20071101
  5. AVONEX [Suspect]
     Route: 030
     Dates: start: 20030101

REACTIONS (1)
  - FALL [None]
